FAERS Safety Report 6290765-9 (Version None)
Quarter: 2009Q3

REPORT INFORMATION
  Report Type: 
  Country: None (occurrence: None)
  Receive Date: 20090730
  Receipt Date: 20090722
  Transmission Date: 20100115
  Serious: Yes (Other)
  Sender: FDA-Public Use
  Company Number: BR-ABBOTT-09P-020-0584486-00

PATIENT
  Sex: Female
  Weight: 98 kg

DRUGS (4)
  1. HUMIRA [Suspect]
     Indication: PSORIATIC ARTHROPATHY
     Route: 058
     Dates: end: 20090616
  2. HUMIRA [Suspect]
     Route: 058
     Dates: start: 20090708
  3. FLUOXETINE [Concomitant]
     Indication: DEPRESSION
     Route: 048
  4. PURAN T4 [Concomitant]
     Indication: HYPOTHYROIDISM
     Route: 048

REACTIONS (3)
  - ABDOMINAL PAIN UPPER [None]
  - ILL-DEFINED DISORDER [None]
  - VOMITING [None]
